FAERS Safety Report 22532786 (Version 1)
Quarter: 2023Q2

REPORT INFORMATION
  Report Type: Spontaneous
  Country: JP (occurrence: JP)
  Receive Date: 20230607
  Receipt Date: 20230607
  Transmission Date: 20230722
  Serious: Yes (Other)
  Sender: FDA-Public Use
  Company Number: JP-002147023-NVSJ2022JP005429

PATIENT

DRUGS (2)
  1. XYLOCAINE [Suspect]
     Active Substance: LIDOCAINE HYDROCHLORIDE
     Indication: Arthralgia
     Dosage: THE DRUG WAS ADMINISTERED 3 DAYS AT THE SHORTEST TIME INTERVAL, AND ONE WEEK AT THE LONGEST TIME INT
     Route: 061
  2. DEXAMETHASONE SODIUM PHOSPHATE [Concomitant]
     Active Substance: DEXAMETHASONE SODIUM PHOSPHATE
     Indication: Arthralgia
     Dosage: THE DRUG WAS ADMINISTERED 3 DAYS AT THE SHORTEST TIME INTERVAL, AND ONE WEEK AT THE LONGEST TIME INT
     Route: 061

REACTIONS (5)
  - Osteonecrosis [Unknown]
  - Joint effusion [Unknown]
  - Pain [Unknown]
  - Walking aid user [Unknown]
  - Bone contusion [Unknown]
